FAERS Safety Report 4413907-6 (Version None)
Quarter: 2004Q3

REPORT INFORMATION
  Report Type: 
  Country: None (occurrence: None)
  Receive Date: 20040802
  Receipt Date: 20040721
  Transmission Date: 20050211
  Serious: Yes (Congenital Anomaly)
  Sender: FDA-Public Use
  Company Number: 2004UW15586

PATIENT
  Age: 39 Year
  Sex: Female
  Weight: 76 kg

DRUGS (4)
  1. CRESTOR [Suspect]
     Indication: HYPERCHOLESTEROLAEMIA
     Dosage: 10 MG QD PO
     Route: 048
     Dates: end: 20040204
  2. MULTI-VITAMINS [Concomitant]
  3. LOVENOX [Concomitant]
  4. FRAGMIN [Concomitant]

REACTIONS (6)
  - ABORTION INDUCED [None]
  - CEREBELLAR ATROPHY [None]
  - CEREBRAL ATROPHY [None]
  - CEREBRAL HAEMORRHAGE FOETAL [None]
  - CONGENITAL CENTRAL NERVOUS SYSTEM ANOMALY [None]
  - DRUG EXPOSURE DURING PREGNANCY [None]
